FAERS Safety Report 10264747 (Version 2)
Quarter: 2014Q3

REPORT INFORMATION
  Report Type: Spontaneous
  Country: US (occurrence: US)
  Receive Date: 20140627
  Receipt Date: 20140819
  Transmission Date: 20150326
  Serious: Yes (Other)
  Sender: FDA-Public Use
  Company Number: US-ASTRAZENECA-2014SE45917

PATIENT
  Age: 66 Year
  Sex: Female
  Weight: 99.8 kg

DRUGS (2)
  1. SYMBICORT [Suspect]
     Active Substance: BUDESONIDE\FORMOTEROL FUMARATE DIHYDRATE
     Indication: ASTHMA
     Dosage: 80/4.5, 2 PUFFS TWICE DAILY
     Route: 055
     Dates: start: 20140605
  2. SYMBICORT [Suspect]
     Active Substance: BUDESONIDE\FORMOTEROL FUMARATE DIHYDRATE
     Indication: ASTHMA
     Dosage: 80/4.5, 2 PUFFS DAILY
     Route: 055
     Dates: start: 20140605

REACTIONS (12)
  - Discomfort [Unknown]
  - Discomfort [Unknown]
  - Anxiety [Unknown]
  - Nausea [Unknown]
  - Malaise [Unknown]
  - Circumstance or information capable of leading to medication error [Unknown]
  - Dysphonia [Recovered/Resolved]
  - Off label use [Unknown]
  - Dizziness [Unknown]
  - Burning sensation [Unknown]
  - Nervousness [Unknown]
  - Fatigue [Unknown]

NARRATIVE: CASE EVENT DATE: 201406
